FAERS Safety Report 7313219-7 (Version None)
Quarter: 2011Q1

REPORT INFORMATION
  Report Type: 
  Country: None (occurrence: None)
  Receive Date: 20110215
  Receipt Date: 20110215
  Transmission Date: 20110831
  Serious: No
  Sender: FDA-Public Use
  Company Number: None

PATIENT

DRUGS (1)
  1. FOSAMAX [Suspect]
     Dates: end: 20100829

REACTIONS (9)
  - TOOTH EXTRACTION [None]
  - BREAKTHROUGH PAIN [None]
  - POST PROCEDURAL COMPLICATION [None]
  - WOUND HAEMORRHAGE [None]
  - SWELLING [None]
  - RESPIRATORY RATE INCREASED [None]
  - PAIN [None]
  - PROCEDURAL PAIN [None]
  - ASTHENIA [None]
